FAERS Safety Report 20749008 (Version 2)
Quarter: 2022Q2

REPORT INFORMATION
  Report Type: Spontaneous
  Country: US (occurrence: US)
  Receive Date: 20220426
  Receipt Date: 20220506
  Transmission Date: 20220721
  Serious: Yes (Other)
  Sender: FDA-Public Use
  Company Number: US-TAKEDA-2022TUS027033

PATIENT
  Age: 18 Year
  Sex: Male

DRUGS (19)
  1. MOTEGRITY [Suspect]
     Active Substance: PRUCALOPRIDE SUCCINATE
     Indication: Constipation
     Dosage: 2 MILLIGRAM, QD
     Route: 065
     Dates: start: 20220405, end: 20220405
  2. MOTEGRITY [Suspect]
     Active Substance: PRUCALOPRIDE SUCCINATE
     Dosage: 2 MILLIGRAM, QD
     Route: 065
     Dates: start: 20220409, end: 20220424
  3. ONFI [Concomitant]
     Active Substance: CLOBAZAM
     Indication: Seizure
     Dosage: 10 MILLILITER, BID
     Route: 050
  4. FYCOMPA [Concomitant]
     Active Substance: PERAMPANEL
     Indication: Seizure
     Dosage: 1 DOSAGE FORM, QD
     Route: 065
  5. KEPPRA [Concomitant]
     Active Substance: LEVETIRACETAM
     Indication: Seizure
     Dosage: 45 MILLILITER, QD
     Route: 065
  6. EPIDIOLEX [Concomitant]
     Active Substance: CANNABIDIOL
     Indication: Seizure
     Dosage: 5 MILLILITER, BID
     Route: 065
  7. BUDESONIDE [Concomitant]
     Active Substance: BUDESONIDE
     Indication: Asthma
     Dosage: 2 MILLILITER, BID
     Route: 045
  8. IPRATROPIUM [Concomitant]
     Active Substance: IPRATROPIUM
     Indication: Asthma
     Dosage: 3 MILLILITER
     Route: 045
  9. SODIUM CHLORIDE [Concomitant]
     Active Substance: SODIUM CHLORIDE
     Dosage: 4 MILLILITER
     Route: 045
  10. MONTELUKAST [Concomitant]
     Active Substance: MONTELUKAST SODIUM
     Indication: Asthma
     Dosage: 1 DOSAGE FORM, QD
     Route: 065
  11. FAMOTIDINE [Concomitant]
     Active Substance: FAMOTIDINE
     Indication: Gastrooesophageal reflux disease
     Dosage: 20 MILLIGRAM, BID
     Route: 065
  12. LANSOPRAZOLE [Concomitant]
     Active Substance: LANSOPRAZOLE
     Indication: Gastrooesophageal reflux disease
     Dosage: 1 DOSAGE FORM, BID
     Route: 065
  13. FLUTICASONE [Concomitant]
     Active Substance: FLUTICASONE
     Indication: Multiple allergies
     Dosage: UNK
  14. CETIRIZINE HYDROCHLORIDE [Concomitant]
     Active Substance: CETIRIZINE HYDROCHLORIDE
     Indication: Multiple allergies
     Dosage: 10 MILLILITER, QD
     Route: 065
  15. POLYETHYLENE GLYCOL [Concomitant]
     Active Substance: POLYETHYLENE GLYCOL
     Indication: Constipation
  16. URSODIOL [Concomitant]
     Active Substance: URSODIOL
     Dosage: 1 DOSAGE FORM
  17. TIZANIDINE [Concomitant]
     Active Substance: TIZANIDINE
     Indication: Muscle spasticity
     Dosage: UNK UNK, BID
  18. VITAMIN B6 [Concomitant]
     Active Substance: PYRIDOXINE HYDROCHLORIDE
     Dosage: 3 DOSAGE FORM, BID
     Route: 050
  19. VITAMIN D [Concomitant]
     Active Substance: VITAMIN D NOS
     Dosage: 25 MICROGRAM, QD
     Route: 065

REACTIONS (1)
  - Seizure [Unknown]
